FAERS Safety Report 7413116-2 (Version None)
Quarter: 2011Q2

REPORT INFORMATION
  Report Type: 
  Country: None (occurrence: None)
  Receive Date: 20110405
  Receipt Date: 20110317
  Transmission Date: 20111010
  Serious: Yes (Death)
  Sender: FDA-Public Use
  Company Number: 2011P1005314

PATIENT
  Age: 61 Year
  Sex: Male

DRUGS (8)
  1. BENZOTROPINE (NO PREF. NAME) [Suspect]
     Dosage: PO
     Route: 048
  2. LISINOPRIL [Suspect]
     Dosage: PO
     Route: 048
  3. MIRTAZAPINE [Suspect]
     Dosage: PO
     Route: 048
  4. BENZONATATE [Suspect]
     Dosage: PO
     Route: 048
  5. LORAZEPAM [Suspect]
     Dosage: PO
     Route: 048
  6. TEMAZEPAM [Suspect]
     Dosage: PO
     Route: 048
  7. DOXAZOSIN (NO PREF. NAME) [Suspect]
     Dosage: PO
     Route: 048
  8. RISPERIDONE [Suspect]
     Dosage: PO
     Route: 048

REACTIONS (2)
  - COMPLETED SUICIDE [None]
  - INTENTIONAL DRUG MISUSE [None]
